FAERS Safety Report 9182793 (Version 1)
Quarter: 2012Q4

REPORT INFORMATION
  Report Type: Report from Study
  Country: HK (occurrence: HK)
  Receive Date: 20121031
  Receipt Date: 20121031
  Transmission Date: 20130627
  Serious: Yes (Other)
  Sender: FDA-Public Use
  Company Number: HK-RB-046140-12

PATIENT
  Age: 68 Year
  Sex: Female

DRUGS (4)
  1. DETTOL (CHLOROXYLENOL) [Suspect]
     Indication: PRODUCT USED FOR UNKNOWN INDICATION
     Dosage: Patient consumed 500 ml orally
     Route: 048
  2. LIBRIUM [Suspect]
     Indication: PRODUCT USED FOR UNKNOWN INDICATION
  3. MIANSERIN [Suspect]
     Indication: PRODUCT USED FOR UNKNOWN INDICATION
  4. TRAZODONE [Suspect]
     Indication: PRODUCT USED FOR UNKNOWN INDICATION

REACTIONS (3)
  - Respiratory tract oedema [Recovered/Resolved]
  - Toxicity to various agents [Recovered/Resolved]
  - Incorrect route of drug administration [Recovered/Resolved]
